FAERS Safety Report 4524170-X (Version None)
Quarter: 2004Q4

REPORT INFORMATION
  Report Type: 
  Country: None (occurrence: None)
  Receive Date: 20041209
  Receipt Date: 20041124
  Transmission Date: 20050328
  Serious: Yes (Death, Hospitalization)
  Sender: FDA-Public Use
  Company Number: 2004-00616

PATIENT
  Age: 56 Year
  Sex: Male
  Weight: 94 kg

DRUGS (4)
  1. VELCADE [Suspect]
     Indication: MULTIPLE MYELOMA
     Dosage: 2.70 MG, INTRAVENOUS
     Route: 042
     Dates: start: 20040618, end: 20040628
  2. ACE INHIBITOR NOS [Concomitant]
  3. FENOFIBRATE [Concomitant]
  4. PROZAC [Concomitant]

REACTIONS (15)
  - ANAEMIA [None]
  - ASTHENIA [None]
  - BACK PAIN [None]
  - COMA [None]
  - DECEREBRATION [None]
  - FATIGUE [None]
  - INFECTION [None]
  - INTESTINAL FUNCTIONAL DISORDER [None]
  - MALIGNANT NEOPLASM PROGRESSION [None]
  - MICTURITION DISORDER [None]
  - MULTIPLE MYELOMA [None]
  - PARALYSIS [None]
  - PARAPARESIS [None]
  - SOMNOLENCE [None]
  - WHITE BLOOD CELL COUNT INCREASED [None]
